FAERS Safety Report 8281871-8 (Version None)
Quarter: 2012Q2

REPORT INFORMATION
  Report Type: 
  Country: None (occurrence: None)
  Receive Date: 20120410
  Receipt Date: 20120403
  Transmission Date: 20120825
  Serious: Yes (Other)
  Sender: FDA-Public Use
  Company Number: CIP-2012-00111

PATIENT
  Age: 5 Year
  Sex: Male

DRUGS (2)
  1. RISPERIDONE [Suspect]
     Indication: AUTISM
  2. RISPERIDONE [Suspect]
     Indication: CONDUCT DISORDER

REACTIONS (1)
  - HEPATIC ENZYME INCREASED [None]
